FAERS Safety Report 5301261-7 (Version None)
Quarter: 2007Q2

REPORT INFORMATION
  Report Type: 
  Country: None (occurrence: None)
  Receive Date: 20070411
  Receipt Date: 20070330
  Transmission Date: 20071010
  Serious: Yes (Death, Life-Threatening, Other)
  Sender: FDA-Public Use
  Company Number: 2007-00202

PATIENT
  Age: 78 Year
  Sex: Male

DRUGS (14)
  1. VELCADE [Suspect]
     Indication: MULTIPLE MYELOMA
     Dosage: 1.88 MG,
     Dates: start: 20070105, end: 20070112
  2. DEXAMETHASONE 0.5MG TAB [Concomitant]
  3. FAMOTIDINE [Concomitant]
  4. FLIVAS (NAFTOPIDIL) [Concomitant]
  5. CLINORIL [Concomitant]
  6. ALFAROL (ALFACALCIDOL) [Concomitant]
  7. METHYCOBAL (MECOBALAMIN) [Concomitant]
  8. FOLIC ACID [Concomitant]
  9. CALCIUM LACTATE (CALCIUM LACTATE) [Concomitant]
  10. ALENDRONATE SODIUM [Concomitant]
  11. KAMAG G (MAGNESIUM OXIDE) [Concomitant]
  12. NORVASC [Concomitant]
  13. BAKTAR (SULFAMETHAXAZOLE, TRIMETHOPRIM) [Concomitant]
  14. NEUPOGEN [Concomitant]

REACTIONS (15)
  - ANOREXIA [None]
  - ASPERGILLOSIS [None]
  - BLOOD ALBUMIN DECREASED [None]
  - BLOOD BILIRUBIN INCREASED [None]
  - BLOOD UREA INCREASED [None]
  - BONE MARROW FAILURE [None]
  - ENTEROCOCCAL INFECTION [None]
  - HAEMORRHAGE SUBCUTANEOUS [None]
  - HYPOCALCAEMIA [None]
  - HYPOKALAEMIA [None]
  - NEUROPATHY PERIPHERAL [None]
  - PLEURAL EFFUSION [None]
  - PNEUMONIA BACTERIAL [None]
  - PNEUMOTHORAX [None]
  - PROTEIN TOTAL DECREASED [None]
